FAERS Safety Report 19744363 (Version 1)
Quarter: 2021Q3

REPORT INFORMATION
  Report Type: Spontaneous
  Country: FR (occurrence: FR)
  Receive Date: 20210825
  Receipt Date: 20210825
  Transmission Date: 20211014
  Serious: Yes (Hospitalization)
  Sender: FDA-Public Use
  Company Number: FR-TEVA-2021-FR-1943877

PATIENT
  Age: 31 Year
  Sex: Female

DRUGS (8)
  1. LORMETAZEPAM [Suspect]
     Active Substance: LORMETAZEPAM
     Route: 065
  2. BUPRENORPHINE. [Suspect]
     Active Substance: BUPRENORPHINE
     Route: 065
  3. ALPHA?PHP [Suspect]
     Active Substance: ALPHA-PHP
     Route: 065
  4. LORAZEPAM. [Suspect]
     Active Substance: LORAZEPAM
     Route: 065
  5. CHLORHYDRATE D^HYDROXYZINE [Suspect]
     Active Substance: HYDROXYZINE HYDROCHLORIDE
     Route: 065
  6. CHLORODIAZEPAM [Suspect]
     Active Substance: 2-CHLORODIAZEPAM
     Dosage: BLOTTER
     Route: 002
  7. PARACETAMOL [Concomitant]
     Active Substance: ACETAMINOPHEN
  8. ISOPROPYLPHENIDATE [Suspect]
     Active Substance: ISOPROPYLPHENIDATE, THREO-
     Route: 065

REACTIONS (4)
  - Vertigo [Recovered/Resolved]
  - Balance disorder [Recovered/Resolved]
  - Disturbance in attention [Recovered/Resolved]
  - Somnolence [Recovered/Resolved]

NARRATIVE: CASE EVENT DATE: 20210125
